FAERS Safety Report 7946916-0 (Version None)
Quarter: 2011Q4

REPORT INFORMATION
  Report Type: 
  Country: None (occurrence: None)
  Receive Date: 20111129
  Receipt Date: 20111123
  Transmission Date: 20120403
  Serious: Yes (Other)
  Sender: FDA-Public Use
  Company Number: US-PFIZER INC-2011287527

PATIENT
  Sex: Female
  Weight: 61.224 kg

DRUGS (8)
  1. EPOPROSTENOL [Concomitant]
     Indication: LUNG DISORDER
  2. EPOPROSTENOL [Concomitant]
     Indication: CARDIAC DISORDER
     Dosage: UNK
  3. SPIRONOLACTONE W/ HYDROCHLOROTHIAZIDE [Concomitant]
     Indication: CARDIAC DISORDER
     Dosage: 25/25 MG,  DAILY
  4. REVATIO [Suspect]
     Indication: PULMONARY HYPERTENSION
     Dosage: 20 MG, 3X/DAY
     Route: 048
     Dates: start: 20090301, end: 20110901
  5. SPIRONOLACTONE W/ HYDROCHLOROTHIAZIDE [Concomitant]
     Indication: DIURETIC THERAPY
  6. DIGOXIN [Concomitant]
     Indication: CARDIAC DISORDER
     Dosage: 0.125 MG, DAILY
  7. GLIPIZIDE [Concomitant]
     Indication: DIABETES MELLITUS
     Dosage: 5 MG, 2X/DAY
  8. LEVOTHYROXINE [Concomitant]
     Indication: THYROID DISORDER
     Dosage: 137 UG, DAILY

REACTIONS (4)
  - EYE PAIN [None]
  - VISION BLURRED [None]
  - BLINDNESS [None]
  - PHOTOPHOBIA [None]
